FAERS Safety Report 16009424 (Version 1)
Quarter: 2019Q1

REPORT INFORMATION
  Report Type: Spontaneous
  Country: US (occurrence: US)
  Receive Date: 20190226
  Receipt Date: 20190226
  Transmission Date: 20190418
  Serious: No
  Sender: FDA-Public Use
  Company Number: US-009507513-1902USA008219

PATIENT
  Sex: Female

DRUGS (1)
  1. GANIRELIX ACETATE. [Suspect]
     Active Substance: GANIRELIX ACETATE
     Dosage: 250/.5 MICROGRAM SINGLE DOSE SYRINGE, SUBCUTANEOUS INJECTION IN THE STOMACH
     Route: 058

REACTIONS (2)
  - Accidental exposure to product [Unknown]
  - Product quality issue [Unknown]

NARRATIVE: CASE EVENT DATE: 2019
